FAERS Safety Report 15849178 (Version 3)
Quarter: 2020Q3

REPORT INFORMATION
  Report Type: Spontaneous
  Country: FR (occurrence: FR)
  Receive Date: 20190121
  Receipt Date: 20190212
  Transmission Date: 20201105
  Serious: Yes (Other)
  Sender: FDA-Public Use
  Company Number: FR-MYLANLABS-2019M1003820

PATIENT
  Age: 69 Year
  Sex: Male
  Weight: 68 kg

DRUGS (14)
  1. LANSOPRAZOLO MYLAN [Suspect]
     Active Substance: LANSOPRAZOLE
     Indication: PROPHYLAXIS AGAINST GASTROINTESTINAL ULCER
     Dosage: 1 DOSAGE FORM, QD
     Route: 048
     Dates: start: 20180604, end: 20180608
  2. KETOPROFENE MACOPHARMA [Suspect]
     Active Substance: KETOPROFEN
     Indication: POST-TRAUMATIC PAIN
     Dosage: 1 DOSAGE FORM, BID (1 DOSAGE FORM, 12 H)
     Route: 042
     Dates: start: 20180604, end: 20180605
  3. EPHEDRINE. [Suspect]
     Active Substance: EPHEDRINE
     Indication: PROCEDURAL HYPOTENSION
     Dosage: 30 MILLIGRAM, TOTAL
     Route: 042
     Dates: start: 20180604, end: 20180604
  4. TOPALGIC                           /00599202/ [Suspect]
     Active Substance: TRAMADOL HYDROCHLORIDE
     Indication: ANALGESIC THERAPY
     Dosage: 1 DOSAGE FORM, Q6H
     Route: 042
     Dates: start: 20180604, end: 20180605
  5. BUPIVACAINE. [Suspect]
     Active Substance: BUPIVACAINE
     Indication: ANAESTHESIA
     Dosage: 13 MILLIGRAM, TOTAL
     Route: 024
     Dates: start: 20180604, end: 20180604
  6. FRAGMINE [Suspect]
     Active Substance: DALTEPARIN SODIUM
     Indication: THROMBOSIS PROPHYLAXIS
     Dosage: 1 DOSAGE FORM, QD
     Route: 058
  7. SUFENTA [Suspect]
     Active Substance: SUFENTANIL CITRATE
     Indication: PROCEDURAL PAIN
     Dosage: 2.5 MICROGRAM
     Route: 024
  8. CEFUROXIME. [Suspect]
     Active Substance: CEFUROXIME
     Indication: ANTIBIOTIC PROPHYLAXIS
     Dosage: 1.5 GRAM, TOTAL
     Route: 042
     Dates: start: 20180604, end: 20180604
  9. DOLIPRANE [Suspect]
     Active Substance: ACETAMINOPHEN
     Indication: POSTOPERATIVE ANALGESIA
     Dosage: 3 DOSAGE FORM, QD
     Route: 048
     Dates: start: 20180605, end: 20180608
  10. PARACETAMOL KABI [Suspect]
     Active Substance: ACETAMINOPHEN
     Indication: PAIN
     Dosage: 1 DOSAGE FORM, Q6H
     Route: 042
     Dates: start: 20180604, end: 20180605
  11. NEFOPAM MYLAN 20 MG/2 ML, SOLUTION INJECTABLE [Suspect]
     Active Substance: NEFOPAM HYDROCHLORIDE
     Indication: PROCEDURAL PAIN
     Dosage: 1 DOSAGE FORM, Q6H
     Route: 042
     Dates: start: 20180604, end: 20180605
  12. PRIMPERAN [Suspect]
     Active Substance: METOCLOPRAMIDE HYDROCHLORIDE
     Indication: NAUSEA
     Dosage: 3 DOSAGE FORM, QD
     Route: 048
     Dates: start: 20180606, end: 20180607
  13. NEOSYNEPHRINE [Suspect]
     Active Substance: PHENYLEPHRINE HYDROCHLORIDE
     Indication: PROCEDURAL HYPOTENSION
     Dosage: 100 MICROGRAM, TOTAL
     Route: 042
     Dates: start: 20180604, end: 20180604
  14. MIDAZOLAM HYDROCHLORIDE. [Suspect]
     Active Substance: MIDAZOLAM HYDROCHLORIDE
     Indication: ANAESTHESIA
     Dosage: 2 MILLIGRAM, TOTAL
     Route: 042
     Dates: start: 20180604, end: 20180604

REACTIONS (1)
  - Haemolytic anaemia [Recovered/Resolved]

NARRATIVE: CASE EVENT DATE: 20180608
